FAERS Safety Report 16633477 (Version 1)
Quarter: 2019Q3

REPORT INFORMATION
  Report Type: Spontaneous
  Country: US (occurrence: US)
  Receive Date: 20190725
  Receipt Date: 20190725
  Transmission Date: 20191004
  Serious: No
  Sender: FDA-Public Use
  Company Number: US-BRACCO-2019US01914

PATIENT
  Age: 83 Year
  Sex: Female

DRUGS (1)
  1. TAGITOL V [Suspect]
     Active Substance: BARIUM SULFATE
     Indication: COLONOSCOPY
     Dosage: 20 ML, TID (AT 8AM, 12PM, 5PM)
     Route: 048
     Dates: start: 20190416, end: 20190416

REACTIONS (5)
  - Feeling cold [Recovering/Resolving]
  - Muscle spasms [Recovered/Resolved]
  - Hypertension [Recovering/Resolving]
  - Retching [Recovered/Resolved]
  - Headache [Recovering/Resolving]

NARRATIVE: CASE EVENT DATE: 20190417
